FAERS Safety Report 6826053-9 (Version None)
Quarter: 2010Q3

REPORT INFORMATION
  Report Type: 
  Country: None (occurrence: None)
  Receive Date: 20100709
  Receipt Date: 20100701
  Transmission Date: 20110219
  Serious: Yes (Hospitalization, Other)
  Sender: FDA-Public Use
  Company Number: US-ASTRAZENECA-2007UW07739

PATIENT
  Age: 36 Year
  Sex: Male
  Weight: 122.5 kg

DRUGS (17)
  1. SEROQUEL [Suspect]
     Indication: ANXIETY
     Route: 048
     Dates: start: 20020906, end: 20030804
  2. SEROQUEL [Suspect]
     Indication: BIPOLAR DISORDER
     Route: 048
     Dates: start: 20020906, end: 20030804
  3. SEROQUEL [Suspect]
     Indication: SLEEP DISORDER
     Route: 048
     Dates: start: 20020906, end: 20030804
  4. SEROQUEL [Suspect]
     Dosage: 20-300MG
     Route: 048
     Dates: start: 20021107
  5. SEROQUEL [Suspect]
     Dosage: 20-300MG
     Route: 048
     Dates: start: 20021107
  6. SEROQUEL [Suspect]
     Dosage: 20-300MG
     Route: 048
     Dates: start: 20021107
  7. ZYPREXA [Suspect]
     Indication: ANXIETY
     Route: 048
     Dates: start: 20030828, end: 20040212
  8. ZYPREXA [Suspect]
     Route: 048
     Dates: start: 20031005, end: 20040213
  9. ABILIFY [Concomitant]
  10. HALDOL [Concomitant]
  11. EFFEXOR [Concomitant]
     Route: 048
  12. DEPAKOTE [Concomitant]
     Indication: MOOD SWINGS
     Route: 048
  13. DEPAKOTE [Concomitant]
     Indication: CONVULSION
     Route: 048
  14. GENERLAC [Concomitant]
     Dosage: 10GM/15ML, TWO TIMES A DAY
     Route: 048
  15. MILKTHISTLE [Concomitant]
     Route: 048
  16. LABETALOL HCL [Concomitant]
     Route: 048
  17. PHENYTOIN [Concomitant]
     Route: 048

REACTIONS (19)
  - BLOOD URINE [None]
  - CEREBRAL HAEMORRHAGE [None]
  - CONVULSION [None]
  - DIABETES MELLITUS [None]
  - DIABETIC COMA [None]
  - DIABETIC KETOACIDOSIS [None]
  - DYSPNOEA [None]
  - HAEMORRHAGE INTRACRANIAL [None]
  - HEPATIC ENCEPHALOPATHY [None]
  - HEPATIC FAILURE [None]
  - HEPATITIS C [None]
  - HYPERTENSION [None]
  - JAUNDICE [None]
  - LIMB INJURY [None]
  - LIVER DISORDER [None]
  - OBESITY [None]
  - SKIN LACERATION [None]
  - TYPE 2 DIABETES MELLITUS [None]
  - WEIGHT INCREASED [None]
